FAERS Safety Report 13397820 (Version 2)
Quarter: 2018Q1

REPORT INFORMATION
  Report Type: Spontaneous
  Country: US (occurrence: US)
  Receive Date: 20170403
  Receipt Date: 20180316
  Transmission Date: 20180508
  Serious: Yes (Hospitalization)
  Sender: FDA-Public Use
  Company Number: US-JNJFOC-20170329800

PATIENT
  Sex: Female
  Weight: 71.67 kg

DRUGS (9)
  1. B6 + B12 FOLIC ACID [Concomitant]
     Route: 065
     Dates: start: 201611
  2. BENICAR [Concomitant]
     Active Substance: OLMESARTAN MEDOXOMIL
     Indication: HYPERTENSION
     Route: 065
  3. TIKOSYN [Concomitant]
     Active Substance: DOFETILIDE
     Indication: ATRIAL FIBRILLATION
     Route: 048
     Dates: start: 2017
  4. XARELTO [Suspect]
     Active Substance: RIVAROXABAN
     Indication: CEREBROVASCULAR ACCIDENT PROPHYLAXIS
     Route: 048
     Dates: start: 201411
  5. MAGNESIUM [Concomitant]
     Active Substance: MAGNESIUM
     Route: 065
     Dates: start: 20160920
  6. NORVASC [Concomitant]
     Active Substance: AMLODIPINE BESYLATE
     Dosage: HALF TABLET ONCE BY MOUTH
     Route: 048
  7. XARELTO [Suspect]
     Active Substance: RIVAROXABAN
     Indication: ATRIAL FIBRILLATION
     Route: 048
     Dates: start: 201411
  8. BENICAR [Concomitant]
     Active Substance: OLMESARTAN MEDOXOMIL
     Indication: HYPERTENSION
     Dosage: HALF TABLET ONCE A DAY
     Route: 065
  9. COLECALCIFEROL [Concomitant]
     Active Substance: CHOLECALCIFEROL
     Route: 065
     Dates: start: 2012

REACTIONS (3)
  - Tooth disorder [Unknown]
  - Atrial fibrillation [Recovered/Resolved]
  - Gingivitis [Unknown]
